FAERS Safety Report 25191384 (Version 2)
Quarter: 2025Q2

REPORT INFORMATION
  Report Type: Spontaneous
  Country: FR (occurrence: FR)
  Receive Date: 20250411
  Receipt Date: 20250426
  Transmission Date: 20250717
  Serious: Yes (Hospitalization)
  Sender: AUROBINDO
  Company Number: FR-AFSSAPS-TO2025000511

PATIENT
  Age: 68 Year
  Sex: Male
  Weight: 89.5 kg

DRUGS (1)
  1. CARBOPLATIN [Suspect]
     Active Substance: CARBOPLATIN
     Indication: Chemotherapy
     Route: 042
     Dates: start: 20250102, end: 20250102

REACTIONS (1)
  - Mucosal ulceration [Recovering/Resolving]

NARRATIVE: CASE EVENT DATE: 20250102
